FAERS Safety Report 6221707-X (Version None)
Quarter: 2009Q2

REPORT INFORMATION
  Report Type: 
  Country: None (occurrence: None)
  Receive Date: 20090610
  Receipt Date: 20090605
  Transmission Date: 20091009
  Serious: Yes (Other)
  Sender: FDA-Public Use
  Company Number: US-BAXTER-2009BH009245

PATIENT
  Age: 51 Year
  Sex: Male
  Weight: 87 kg

DRUGS (8)
  1. ONDANSETRON, UNSPECIFIED [Suspect]
     Indication: PROPHYLAXIS OF NAUSEA AND VOMITING
     Route: 042
  2. CEFAZOLIN [Concomitant]
     Indication: INFECTION PROPHYLAXIS
     Route: 042
  3. ROCURONIUM BROMIDE [Concomitant]
     Indication: ANAESTHESIA
     Route: 065
  4. ISOFLURANE [Concomitant]
     Indication: ANAESTHESIA
     Route: 065
  5. PROPOFOL [Concomitant]
     Indication: ANAESTHESIA
     Route: 065
  6. FENTANYL [Concomitant]
     Indication: ANAESTHESIA
     Route: 065
  7. MIDAZOLAM HCL [Concomitant]
     Indication: ANAESTHESIA
     Route: 065
  8. GLYCOPYRROLATE [Concomitant]
     Indication: DRUG USE FOR UNKNOWN INDICATION
     Route: 042

REACTIONS (7)
  - ARTERIOSPASM CORONARY [None]
  - ATRIAL FIBRILLATION [None]
  - CHEST PAIN [None]
  - HYPERHIDROSIS [None]
  - HYPOTENSION [None]
  - NAUSEA [None]
  - VOMITING [None]
